FAERS Safety Report 25625418 (Version 1)
Quarter: 2025Q3

REPORT INFORMATION
  Report Type: Spontaneous
  Country: US (occurrence: US)
  Receive Date: 20250731
  Receipt Date: 20250731
  Transmission Date: 20251021
  Serious: Yes (Life-Threatening, Hospitalization)
  Sender: ACCORD
  Company Number: US-Accord-496905

PATIENT
  Age: 76 Year
  Sex: Male

DRUGS (6)
  1. CARBIDOPA\LEVODOPA [Suspect]
     Active Substance: CARBIDOPA\LEVODOPA
     Indication: Parkinson^s disease
     Dosage: THE DOSE WAS INCREASED TO TWO 25 MG/100 MG TABLETS FIVE TIMES PER DAY
  2. ROSUVASTATIN [Concomitant]
     Active Substance: ROSUVASTATIN
  3. SILDENAFIL [Concomitant]
     Active Substance: SILDENAFIL
  4. CLOPIDOGREL [Concomitant]
     Active Substance: CLOPIDOGREL BISULFATE
  5. CALCIUM [Concomitant]
     Active Substance: CALCIUM
     Indication: Mineral supplementation
  6. THIAMINE [Concomitant]
     Active Substance: THIAMINE
     Indication: Vitamin supplementation

REACTIONS (2)
  - Generalised tonic-clonic seizure [Recovered/Resolved]
  - Vitamin B6 deficiency [Unknown]
